FAERS Safety Report 6749256-0 (Version None)
Quarter: 2010Q2

REPORT INFORMATION
  Report Type: 
  Country: None (occurrence: None)
  Receive Date: 20100601
  Receipt Date: 20100518
  Transmission Date: 20101027
  Serious: Yes (Other)
  Sender: FDA-Public Use
  Company Number: PHHY2010US28378

PATIENT
  Sex: Female

DRUGS (19)
  1. RECLAST [Suspect]
     Indication: OSTEOPOROSIS
     Dosage: 5 MG/100ML
     Route: 042
     Dates: start: 20080101, end: 20100329
  2. ACCUPRIL [Concomitant]
     Dosage: 40 MG, QD
     Route: 048
  3. EXCEDRIN ASPIRIN FREE [Concomitant]
     Dosage: 1 TABLET EVERY 4 TO 6 HOURS AS NEEDED
  4. ASPIRIN [Concomitant]
     Dosage: 81 MG, DAILY
     Route: 048
  5. ATROVENT [Concomitant]
     Dosage: 2 SPRAYS EACH NOSTRIL TWICE DAILY AS NEEDED
  6. CALCARB [Concomitant]
     Dosage: 600-125 MG-UNIT OR TABS, 1 TAB TID
  7. CENTRUM SILVER [Concomitant]
     Dosage: 1 TABLET DAILY
  8. CLINDAMYCIN HYDROCHLORIDE [Concomitant]
     Dosage: , 4 TABS ONE HOUR BEFORE DENTAL WORK
     Route: 048
  9. COLACE [Concomitant]
     Dosage: 100 MG, BID
     Route: 048
  10. EXCEDRIN (MIGRAINE) [Concomitant]
     Indication: HEADACHE
     Dosage: 250-250-65 MG AS NEEDED
     Route: 048
  11. FEIODIPINE [Concomitant]
     Dosage: 10 MG DAILY
     Route: 048
  12. MIRALAX [Concomitant]
     Dosage: 17 G, QD
  13. LOVAZA [Concomitant]
     Dosage: 1200 MG, DAILY
     Route: 048
  14. PRAVACHOL [Concomitant]
     Dosage: 40 MG, QD
     Route: 048
  15. PROAIR HFA [Concomitant]
     Indication: DYSPNOEA
     Dosage: 2 PUFFS EVERY 4 TO 6 HOURS AS NEEDED
  16. SEREVENT [Concomitant]
     Dosage: 1 INHALATION EVERY 12 HOURS
  17. SPIRIVA [Concomitant]
     Dosage: 18 MEG IN CAPS, ONCE DAILY
  18. VITAMIN C [Concomitant]
     Dosage: 500 MG, QD
     Route: 048
  19. VITAMIN D3 [Concomitant]
     Dosage: 400 U, QD
     Route: 048

REACTIONS (4)
  - DENTAL FISTULA [None]
  - ENDODONTIC PROCEDURE [None]
  - FISTULA DISCHARGE [None]
  - TOOTH INFECTION [None]
